FAERS Safety Report 24065958 (Version 1)
Quarter: 2024Q3

REPORT INFORMATION
  Report Type: Spontaneous
  Country: US (occurrence: None)
  Receive Date: 20240708
  Receipt Date: 20240708
  Transmission Date: 20241017
  Serious: Yes (Disabling, Other)
  Sender: Public
  Company Number: None

PATIENT
  Age: 43 Year
  Sex: Male
  Weight: 71.1 kg

DRUGS (1)
  1. MOXIFLOXACIN [Suspect]
     Active Substance: MOXIFLOXACIN
     Indication: Mycoplasma genitalium infection
     Dosage: OTHER QUANTITY : 1 TABLET(S);?FREQUENCY : DAILY;?
     Route: 048
     Dates: start: 20240626, end: 20240702

REACTIONS (8)
  - Paraesthesia [None]
  - Tendon disorder [None]
  - Neuropathy peripheral [None]
  - Anxiety [None]
  - Myalgia [None]
  - Pelvic pain [None]
  - Chest pain [None]
  - Abdominal pain upper [None]

NARRATIVE: CASE EVENT DATE: 20240627
